FAERS Safety Report 20119993 (Version 2)
Quarter: 2022Q1

REPORT INFORMATION
  Report Type: Spontaneous
  Country: IN (occurrence: IN)
  Receive Date: 20211126
  Receipt Date: 20220209
  Transmission Date: 20220423
  Serious: Yes (Other)
  Sender: FDA-Public Use
  Company Number: IN-PFIZER INC-2021842631

PATIENT
  Age: 60 Year
  Sex: Male

DRUGS (1)
  1. SUTENT [Suspect]
     Active Substance: SUNITINIB MALATE
     Indication: Gastrointestinal stromal tumour
     Dosage: 37.5 MG, 1X/DAY
     Route: 048
     Dates: end: 20210615

REACTIONS (4)
  - Urinary retention [Unknown]
  - Cardiac operation [Unknown]
  - Neoplasm progression [Unknown]
  - Pain in extremity [Unknown]
